FAERS Safety Report 19861929 (Version 1)
Quarter: 2021Q3

REPORT INFORMATION
  Report Type: Spontaneous
  Country: US (occurrence: US)
  Receive Date: 20210921
  Receipt Date: 20210921
  Transmission Date: 20211014
  Serious: Yes (Death)
  Sender: FDA-Public Use
  Company Number: None

PATIENT
  Age: 59 Year
  Sex: Female
  Weight: 124.4 kg

DRUGS (13)
  1. HEPARIN [Concomitant]
     Active Substance: HEPARIN SODIUM
  2. DEXAMETHASONE. [Concomitant]
     Active Substance: DEXAMETHASONE
  3. PROPOFOL. [Concomitant]
     Active Substance: PROPOFOL
  4. BARICITINIB. [Suspect]
     Active Substance: BARICITINIB
     Indication: COVID-19
     Route: 048
  5. BUSPAR [Concomitant]
     Active Substance: BUSPIRONE HYDROCHLORIDE
  6. FENTANYL. [Concomitant]
     Active Substance: FENTANYL
  7. BUPROPRION [Concomitant]
     Active Substance: BUPROPION
  8. PREVACID [Concomitant]
     Active Substance: LANSOPRAZOLE
  9. VASOPRESSIN. [Concomitant]
     Active Substance: VASOPRESSIN
  10. MIDODRINE [Concomitant]
     Active Substance: MIDODRINE
  11. NOREPINEPHRINE. [Concomitant]
     Active Substance: NOREPINEPHRINE
  12. VENLAFAXINE [Concomitant]
     Active Substance: VENLAFAXINE HYDROCHLORIDE
  13. HUMALOG [Concomitant]
     Active Substance: INSULIN LISPRO

REACTIONS (3)
  - Laboratory test abnormal [None]
  - Coagulopathy [None]
  - Pulseless electrical activity [None]

NARRATIVE: CASE EVENT DATE: 20210921
